FAERS Safety Report 5702318-9 (Version None)
Quarter: 2008Q2

REPORT INFORMATION
  Report Type: 
  Country: None (occurrence: None)
  Receive Date: 20080411
  Receipt Date: 20080403
  Transmission Date: 20081010
  Serious: Yes (Hospitalization)
  Sender: FDA-Public Use
  Company Number: GB-AVENTIS-200811482EU

PATIENT
  Age: 60 Year
  Sex: Male
  Weight: 80 kg

DRUGS (12)
  1. ENOXAPARIN SODIUM [Suspect]
     Indication: DEEP VEIN THROMBOSIS
     Route: 058
     Dates: start: 20080101, end: 20080307
  2. DICLOFENAC SODIUM [Concomitant]
  3. DOMPERIDONE [Concomitant]
  4. FUROSEMIDE [Concomitant]
  5. GABAPENTIN [Concomitant]
  6. LANSOPRAZOLE [Concomitant]
  7. MORPHINE SULFATE [Concomitant]
     Indication: ANALGESIA
     Route: 048
  8. MOVICOL                            /01053601/ [Concomitant]
     Dosage: DOSE: 2 DF
  9. ORAMORPH SR [Concomitant]
     Indication: ANALGESIA
     Route: 048
  10. PARACETAMOL [Concomitant]
     Indication: ANALGESIA
     Route: 048
  11. SENNA [Concomitant]
     Dosage: DOSE: 2 DF
  12. SULFASALAZINE [Concomitant]

REACTIONS (1)
  - HYPOKALAEMIA [None]
